FAERS Safety Report 4655395-0 (Version None)
Quarter: 2005Q2

REPORT INFORMATION
  Report Type: 
  Country: None (occurrence: None)
  Receive Date: 20050506
  Receipt Date: 20050325
  Transmission Date: 20051028
  Serious: Yes (Death, Other)
  Sender: FDA-Public Use
  Company Number: JP-ABBOTT-05P-087-0295294-00

PATIENT
  Sex: Female
  Weight: 8.7 kg

DRUGS (13)
  1. ULTANE [Suspect]
     Indication: ANAESTHESIA
     Route: 055
     Dates: start: 20030220, end: 20030220
  2. VECURONIUM BROMIDE [Concomitant]
     Indication: MUSCLE RELAXANT THERAPY
     Route: 042
     Dates: start: 20030220, end: 20030220
  3. ATROPINE SULFATE [Concomitant]
     Indication: ANAESTHESIA
     Route: 042
     Dates: start: 20030220, end: 20030220
  4. MIDAZOLAM HCL [Concomitant]
     Indication: ANAESTHESIA
     Route: 042
     Dates: start: 20030220, end: 20030220
  5. FENTANYL CITRATE [Concomitant]
     Indication: ANAESTHESIA
     Route: 042
     Dates: start: 20030220, end: 20030220
  6. HEPARIN [Concomitant]
     Indication: THROMBOSIS PROPHYLAXIS
     Route: 042
     Dates: start: 20030220, end: 20030220
  7. PROTAMINE SULFATE [Concomitant]
     Indication: DRUG USE FOR UNKNOWN INDICATION
     Route: 042
     Dates: start: 20030220, end: 20030220
  8. CEFAZOLIN [Concomitant]
     Indication: INFECTION PROPHYLAXIS
     Dosage: 300 MG X3 DR
     Dates: start: 20030220, end: 20030225
  9. ALPROSTADIL [Concomitant]
     Indication: VASODILATION PROCEDURE
     Dosage: 4-10 UG/HR
     Route: 065
     Dates: start: 20030220, end: 20030221
  10. DOPAMINE HCL [Concomitant]
     Indication: CARDIAC DISORDER
     Route: 065
     Dates: start: 20030220, end: 20030221
  11. EUFUSOL [Concomitant]
     Indication: CARDIAC DISORDER
     Dosage: 10 ML/HR
     Route: 065
     Dates: start: 20030220, end: 20030220
  12. PHYSIO 35 [Concomitant]
     Indication: CARDIAC DISORDER
     Dosage: 5 ML/HR
     Route: 065
     Dates: start: 20030220, end: 20030221
  13. FAMOTIDINE [Concomitant]
     Indication: CARDIAC DISORDER
     Route: 065
     Dates: start: 20030220, end: 20030221

REACTIONS (10)
  - BRADYCARDIA [None]
  - CARDIAC ARREST [None]
  - GENERALISED OEDEMA [None]
  - HAEMORRHAGE [None]
  - HYPERKALAEMIA [None]
  - HYPERTHERMIA MALIGNANT [None]
  - LOW CARDIAC OUTPUT SYNDROME [None]
  - METABOLIC ACIDOSIS [None]
  - MULTI-ORGAN FAILURE [None]
  - VENTRICULAR FIBRILLATION [None]
